FAERS Safety Report 21831658 (Version 2)
Quarter: 2023Q1

REPORT INFORMATION
  Report Type: Spontaneous
  Country: CA (occurrence: CA)
  Receive Date: 20230106
  Receipt Date: 20230109
  Transmission Date: 20230417
  Serious: Yes (Death, Other)
  Sender: FDA-Public Use
  Company Number: CA-PFIZER INC-2021294177

PATIENT
  Age: 88 Year
  Sex: Female

DRUGS (2)
  1. XELJANZ [Suspect]
     Active Substance: TOFACITINIB CITRATE
     Indication: Rheumatoid arthritis
     Dosage: 5 MG, 1X/DAY
     Route: 048
     Dates: start: 20210413
  2. PREDNISONE [Concomitant]
     Active Substance: PREDNISONE
     Dosage: UNK

REACTIONS (11)
  - Death [Fatal]
  - Cataract [Unknown]
  - Drug ineffective [Unknown]
  - Off label use [Unknown]
  - Product use issue [Unknown]
  - Abdominal discomfort [Recovering/Resolving]
  - Arthritis [Unknown]
  - Osteoporosis [Unknown]
  - Back pain [Unknown]
  - Cough [Not Recovered/Not Resolved]
  - Hypoacusis [Unknown]

NARRATIVE: CASE EVENT DATE: 20210101
